FAERS Safety Report 18355600 (Version 1)
Quarter: 2020Q4

REPORT INFORMATION
  Report Type: Spontaneous
  Country: US (occurrence: US)
  Receive Date: 20201007
  Receipt Date: 20201007
  Transmission Date: 20210114
  Serious: No
  Sender: FDA-Public Use
  Company Number: None

PATIENT
  Sex: Female

DRUGS (2)
  1. PROPRANOLOL [Suspect]
     Active Substance: PROPRANOLOL HYDROCHLORIDE
  2. TRIAMTERENE-HCTZ 37.5/2.5MG [Suspect]
     Active Substance: TRIAMTERENE-HYDROCHLOROTHIAZIDE

REACTIONS (1)
  - Drug ineffective [None]
